FAERS Safety Report 8487703-7 (Version None)
Quarter: 2012Q3

REPORT INFORMATION
  Report Type: 
  Country: None (occurrence: None)
  Receive Date: 20120705
  Receipt Date: 20120625
  Transmission Date: 20120928
  Serious: Yes (Other)
  Sender: FDA-Public Use
  Company Number: US-JNJFOC-20120612739

PATIENT
  Age: 43 Year
  Sex: Male

DRUGS (3)
  1. FOLIC ACID [Concomitant]
     Route: 065
  2. REMICADE [Suspect]
     Indication: CROHN'S DISEASE
     Route: 042
     Dates: end: 20120101
  3. PREDNISONE [Concomitant]
     Route: 065

REACTIONS (3)
  - DRUG INEFFECTIVE [None]
  - SMALL INTESTINE CARCINOMA METASTATIC [None]
  - METASTASES TO PERITONEUM [None]
